FAERS Safety Report 14631015 (Version 3)
Quarter: 2021Q4

REPORT INFORMATION
  Report Type: Spontaneous
  Country: US (occurrence: US)
  Receive Date: 20180313
  Receipt Date: 20211006
  Transmission Date: 20220303
  Serious: Yes (Other)
  Sender: FDA-Public Use
  Company Number: US-PFIZER INC-2018100297

PATIENT
  Age: 57 Year
  Sex: Male
  Weight: 105 kg

DRUGS (1)
  1. LYRICA [Suspect]
     Active Substance: PREGABALIN
     Indication: Neuropathy peripheral
     Dosage: 600 MG, DAILY (150MG 1 AM, 1 NOON, 2 HS (BEDTIME)
     Route: 048

REACTIONS (4)
  - Gallbladder disorder [Unknown]
  - Nausea [Unknown]
  - Hepatobiliary scan abnormal [Unknown]
  - Extradural abscess [Unknown]
